FAERS Safety Report 18849199 (Version 2)
Quarter: 2021Q1

REPORT INFORMATION
  Report Type: Report from Study
  Country: US (occurrence: US)
  Receive Date: 20210205
  Receipt Date: 20210213
  Transmission Date: 20210419
  Serious: No
  Sender: FDA-Public Use
  Company Number: NVSC2021US021167

PATIENT
  Sex: Female

DRUGS (2)
  1. ENTRESTO [Suspect]
     Active Substance: SACUBITRIL\VALSARTAN
     Indication: CARDIAC FAILURE
     Dosage: 50 MG, BID(26/24MG)
     Route: 048
  2. SODIUM CHLORIDE. [Suspect]
     Active Substance: SODIUM CHLORIDE
     Indication: BLOOD SODIUM DECREASED
     Dosage: UNK, UNKNOWN
     Route: 065

REACTIONS (6)
  - Inappropriate schedule of product administration [Unknown]
  - Vomiting [Unknown]
  - Fatigue [Unknown]
  - Blood sodium decreased [Unknown]
  - Paraesthesia [Unknown]
  - Product dose omission issue [Unknown]
